FAERS Safety Report 18748635 (Version 2)
Quarter: 2021Q4

REPORT INFORMATION
  Report Type: Spontaneous
  Country: US (occurrence: US)
  Receive Date: 20210115
  Receipt Date: 20211108
  Transmission Date: 20220303
  Serious: No
  Sender: FDA-Public Use
  Company Number: US-PFIZER INC-2020451656

PATIENT
  Age: 62 Year
  Sex: Female
  Weight: 83.447 kg

DRUGS (2)
  1. XELJANZ XR [Suspect]
     Active Substance: TOFACITINIB CITRATE
     Dosage: 11 MG, 1X/DAY
  2. GABAPENTIN [Concomitant]
     Active Substance: GABAPENTIN
     Dosage: 400 MG, 2X/DAY
     Dates: start: 201911

REACTIONS (2)
  - Headache [Not Recovered/Not Resolved]
  - Oral pain [Recovering/Resolving]
